FAERS Safety Report 17152370 (Version 1)
Quarter: 2019Q4

REPORT INFORMATION
  Report Type: Spontaneous
  Country: US (occurrence: US)
  Receive Date: 20191213
  Receipt Date: 20191213
  Transmission Date: 20200122
  Serious: No
  Sender: FDA-Public Use
  Company Number: US-ENDO PHARMACEUTICALS INC-2019-101081

PATIENT
  Age: 55 Year
  Sex: Male
  Weight: 117.91 kg

DRUGS (3)
  1. XIAFLEX [Suspect]
     Active Substance: COLLAGENASE CLOSTRIDIUM HISTOLYTICUM
     Indication: PEYRONIE^S DISEASE
     Dosage: UNK UNKNOWN,FIRST CYCLE; SECOND INJECTION
     Route: 026
     Dates: start: 20190117
  2. VALTREX [Concomitant]
     Active Substance: VALACYCLOVIR HYDROCHLORIDE
     Indication: GENITAL HERPES
     Dosage: UNK, DAILY
     Route: 048
  3. XIAFLEX [Suspect]
     Active Substance: COLLAGENASE CLOSTRIDIUM HISTOLYTICUM
     Dosage: UNK UNKNOWN, FIRST CYCLE; FIRST INJECTION
     Route: 026
     Dates: start: 20190114

REACTIONS (5)
  - Penile contusion [Recovering/Resolving]
  - Penile haematoma [Recovered/Resolved]
  - Penile swelling [Recovering/Resolving]
  - Drug ineffective [Unknown]
  - Contusion [Recovering/Resolving]

NARRATIVE: CASE EVENT DATE: 20190114
